FAERS Safety Report 21289086 (Version 1)
Quarter: 2022Q3

REPORT INFORMATION
  Report Type: Spontaneous
  Country: US (occurrence: US)
  Receive Date: 20220902
  Receipt Date: 20220902
  Transmission Date: 20221027
  Serious: Yes (Other)
  Sender: FDA-Public Use
  Company Number: US-ABBVIE-22K-163-4373044-00

PATIENT
  Age: 75 Year
  Sex: Male

DRUGS (4)
  1. VENCLEXTA [Suspect]
     Active Substance: VENETOCLAX
     Indication: Acute monocytic leukaemia
     Dosage: 21 DAYS ROUTINE
     Route: 048
     Dates: start: 2019
  2. AZACITIDINE [Concomitant]
     Active Substance: AZACITIDINE
     Indication: Acute monocytic leukaemia
     Dosage: FOR 5 DAYS
     Dates: start: 2019, end: 2019
  3. AZACITIDINE [Concomitant]
     Active Substance: AZACITIDINE
     Dosage: FOR 5 DAYS
     Dates: start: 2021, end: 2021
  4. IDHIFA [Concomitant]
     Active Substance: ENASIDENIB MESYLATE
     Indication: Acute monocytic leukaemia
     Dates: start: 2019

REACTIONS (5)
  - Febrile neutropenia [Recovered/Resolved]
  - Off label use [Recovered/Resolved]
  - Diarrhoea [Recovered/Resolved]
  - Abdominal discomfort [Recovered/Resolved]
  - Fatigue [Recovered/Resolved]

NARRATIVE: CASE EVENT DATE: 20190101
